FAERS Safety Report 17297109 (Version 2)
Quarter: 2020Q1

REPORT INFORMATION
  Report Type: Spontaneous
  Country: JP (occurrence: JP)
  Receive Date: 20200121
  Receipt Date: 20200205
  Transmission Date: 20200409
  Serious: Yes (Hospitalization, Disabling, Other)
  Sender: FDA-Public Use
  Company Number: JP-UCBSA-2020002487

PATIENT
  Age: 67 Year
  Sex: Male

DRUGS (4)
  1. E KEPPRA [Suspect]
     Active Substance: LEVETIRACETAM
     Dosage: 3000 MILLIGRAM, DAILY
     Route: 048
     Dates: start: 201612, end: 201701
  2. E KEPPRA [Suspect]
     Active Substance: LEVETIRACETAM
     Indication: PARTIAL SEIZURES
     Dosage: UNKNOWN DOSE
     Route: 048
     Dates: end: 201610
  3. E KEPPRA [Suspect]
     Active Substance: LEVETIRACETAM
     Dosage: 1000 MILLIGRAM, DAILY
     Route: 048
     Dates: start: 201611, end: 201612
  4. E KEPPRA [Suspect]
     Active Substance: LEVETIRACETAM
     Dosage: 1500 MILLIGRAM, DAILY
     Route: 048
     Dates: start: 201701, end: 201701

REACTIONS (4)
  - Delusion [Recovered/Resolved]
  - Electroencephalogram abnormal [Recovering/Resolving]
  - Anger [Recovered/Resolved]
  - Hallucination [Recovered/Resolved]

NARRATIVE: CASE EVENT DATE: 201610
